FAERS Safety Report 17968147 (Version 1)
Quarter: 2020Q3

REPORT INFORMATION
  Report Type: Spontaneous
  Country: US (occurrence: US)
  Receive Date: 20200701
  Receipt Date: 20200701
  Transmission Date: 20201103
  Serious: Yes (Disabling)
  Sender: FDA-Public Use
  Company Number: US-TEVA-2020-US-1793613

PATIENT
  Sex: Female

DRUGS (3)
  1. TAXOTERE [Suspect]
     Active Substance: DOCETAXEL
     Route: 065
     Dates: start: 20160613, end: 20160817
  2. DOCETAXEL. [Suspect]
     Active Substance: DOCETAXEL
     Route: 065
     Dates: start: 20160613, end: 20160817
  3. DOCETAXEL. [Suspect]
     Active Substance: DOCETAXEL
     Dosage: FORM OF ADMIN: INJECTION CONCENTRATE
     Route: 065
     Dates: start: 20160613, end: 20160817

REACTIONS (1)
  - Alopecia [Unknown]
